FAERS Safety Report 4551082-8 (Version None)
Quarter: 2005Q1

REPORT INFORMATION
  Report Type: 
  Country: None (occurrence: None)
  Receive Date: 20050113
  Receipt Date: 20041015
  Transmission Date: 20050727
  Serious: Yes (Other)
  Sender: FDA-Public Use
  Company Number: US-BRISTOL-MYERS SQUIBB COMPANY-12733879

PATIENT
  Age: 72 Year
  Sex: Male

DRUGS (6)
  1. IFEX [Suspect]
     Indication: T-CELL LYMPHOMA REFRACTORY
     Dosage: ADMINISTERED ON DAY 2 OVER A 24-HOUR PERIOD
     Route: 042
     Dates: start: 20041014, end: 20041015
  2. CARBOPLATIN [Concomitant]
     Indication: T-CELL LYMPHOMA REFRACTORY
  3. ETOPOSIDE [Concomitant]
     Indication: T-CELL LYMPHOMA REFRACTORY
  4. ANZEMET [Concomitant]
     Indication: PREMEDICATION
  5. DECADRON [Concomitant]
     Indication: PREMEDICATION
  6. DIURETIC [Concomitant]

REACTIONS (1)
  - CONFUSIONAL STATE [None]
